FAERS Safety Report 7884366-6 (Version None)
Quarter: 2011Q4

REPORT INFORMATION
  Report Type: 
  Country: None (occurrence: None)
  Receive Date: 20111102
  Receipt Date: 20111026
  Transmission Date: 20120403
  Serious: Yes (Death)
  Sender: FDA-Public Use
  Company Number: US-PFIZER INC-2011264186

PATIENT
  Age: 6 Month
  Sex: Male

DRUGS (1)
  1. AZITHROMYCIN [Suspect]
     Indication: PNEUMONIA
     Dosage: 500 MG, SINGLE
     Route: 041

REACTIONS (2)
  - ACCIDENTAL OVERDOSE [None]
  - COMA [None]
